FAERS Safety Report 20027417 (Version 1)
Quarter: 2021Q4

REPORT INFORMATION
  Report Type: Spontaneous
  Country: PT (occurrence: PT)
  Receive Date: 20211103
  Receipt Date: 20211103
  Transmission Date: 20220303
  Serious: Yes (Other)
  Sender: FDA-Public Use
  Company Number: PT-002147023-NVSC2021PT242636

PATIENT
  Age: 67 Year
  Sex: Female

DRUGS (5)
  1. ADALIMUMAB [Suspect]
     Active Substance: ADALIMUMAB
     Indication: Psoriasis
     Route: 058
  2. ADALIMUMAB [Suspect]
     Active Substance: ADALIMUMAB
     Indication: Psoriatic arthropathy
     Dosage: 40 MG (FORTNI GHTLY)
     Route: 058
  3. SECUKINUMAB [Suspect]
     Active Substance: SECUKINUMAB
     Indication: Psoriasis
     Route: 058
  4. SECUKINUMAB [Suspect]
     Active Substance: SECUKINUMAB
     Indication: Psoriatic arthropathy
  5. PREDNISOLONE [Concomitant]
     Active Substance: PREDNISOLONE
     Indication: Product used for unknown indication

REACTIONS (16)
  - Pyoderma gangrenosum [Recovered/Resolved]
  - Systemic lupus erythematosus [Unknown]
  - Polyarthritis [Unknown]
  - Odynophagia [Unknown]
  - Skin ulcer [Recovered/Resolved]
  - Aphthous ulcer [Unknown]
  - Cell death [Unknown]
  - Pyrexia [Unknown]
  - Arthritis [Recovered/Resolved]
  - C-reactive protein abnormal [Unknown]
  - Psoriasis [Unknown]
  - Double stranded DNA antibody positive [Unknown]
  - Skin ulcer [Recovered/Resolved]
  - Pustule [Unknown]
  - Skin disorder [Unknown]
  - Red blood cell sedimentation rate increased [Unknown]
